FAERS Safety Report 5007083-9 (Version None)
Quarter: 2006Q1

REPORT INFORMATION
  Report Type: 
  Country: None (occurrence: None)
  Receive Date: 20060330
  Receipt Date: 20060307
  Transmission Date: 20060701
  Serious: Yes (Other)
  Sender: FDA-Public Use
  Company Number: 2006033663

PATIENT
  Age: 15 Year
  Sex: Male
  Weight: 52.1637 kg

DRUGS (2)
  1. ZMAX [Suspect]
     Indication: PHARYNGOLARYNGEAL PAIN
     Dosage: (SINGLE DOSE), ORAL
     Route: 048
     Dates: start: 20060301, end: 20060301
  2. INSULIN [Concomitant]

REACTIONS (1)
  - BLOOD GLUCOSE INCREASED [None]
